FAERS Safety Report 7959794-0 (Version None)
Quarter: 2011Q4

REPORT INFORMATION
  Report Type: 
  Country: None (occurrence: None)
  Receive Date: 20111206
  Receipt Date: 20111128
  Transmission Date: 20120403
  Serious: Yes (Life-Threatening, Other)
  Sender: FDA-Public Use
  Company Number: US-JNJFOC-20110805556

PATIENT
  Sex: Female
  Weight: 50.35 kg

DRUGS (9)
  1. BONIVA [Concomitant]
     Indication: PRODUCT USED FOR UNKNOWN INDICATION
     Route: 065
  2. ^VITAMINS^ (NOS) [Concomitant]
     Indication: PRODUCT USED FOR UNKNOWN INDICATION
     Route: 065
  3. IBUPROFEN (ADVIL) [Suspect]
     Indication: PAIN IN EXTREMITY
     Dosage: 2 TABLETS, ALMOST EVERY DAY FOR ABOUT A WEEK
     Route: 065
     Dates: start: 20110806
  4. VICODIN [Concomitant]
     Indication: PRODUCT USED FOR UNKNOWN INDICATION
     Dosage: STOPPED A WEEK TO TEN DAYS BEFORE THE EPISODE
     Route: 065
  5. PRECISE EXTRA STRENGTH PAIN RELIEVING CREAM [Suspect]
     Indication: PAIN IN EXTREMITY
     Dosage: QUARTER SIZE ON EACH ARM ONCE DAILY FOR ABOUT 3-4 DAYS.
     Route: 061
     Dates: end: 20110806
  6. VAGIFEM [Concomitant]
     Indication: PRODUCT USED FOR UNKNOWN INDICATION
     Route: 065
  7. THYROID SUPPLEMENTS [Concomitant]
     Indication: HYPOTHYROIDISM
     Route: 065
  8. HERBAL [Concomitant]
     Indication: PRODUCT USED FOR UNKNOWN INDICATION
     Route: 065
  9. XANAX [Concomitant]
     Indication: PRODUCT USED FOR UNKNOWN INDICATION
     Route: 065

REACTIONS (1)
  - ANAPHYLACTIC SHOCK [None]
